FAERS Safety Report 20437826 (Version 1)
Quarter: 2022Q1

REPORT INFORMATION
  Report Type: Spontaneous
  Country: US (occurrence: None)
  Receive Date: 20220204
  Receipt Date: 20220204
  Transmission Date: 20220423
  Serious: Yes (Hospitalization)
  Sender: FDA-Public Use
  Company Number: None

PATIENT
  Sex: Female

DRUGS (1)
  1. MYCOPHENOLIC ACID [Suspect]
     Active Substance: MYCOPHENOLIC ACID
     Indication: Immunodeficiency
     Dosage: FREQUENCY : DAILY;3 TABLETS =1500 MG?
     Route: 048
     Dates: start: 20200709

REACTIONS (1)
  - COVID-19 [None]
